FAERS Safety Report 16714306 (Version 2)
Quarter: 2019Q3

REPORT INFORMATION
  Report Type: Spontaneous
  Country: US (occurrence: US)
  Receive Date: 20190819
  Receipt Date: 20190826
  Transmission Date: 20191004
  Serious: Yes (Life-Threatening, Hospitalization, Other)
  Sender: FDA-Public Use
  Company Number: US-DRREDDYS-USA/USA/19/0113227

PATIENT
  Age: 15 Year
  Sex: Female
  Weight: 68.5 kg

DRUGS (7)
  1. DOPAMINE [Concomitant]
     Active Substance: DOPAMINE HYDROCHLORIDE
     Indication: CARDIOGENIC SHOCK
     Route: 065
  2. MILRINONE [Concomitant]
     Active Substance: MILRINONE
     Indication: CARDIOGENIC SHOCK
     Route: 065
  3. HEPARIN SODIUM. [Suspect]
     Active Substance: HEPARIN SODIUM
     Indication: ANTICOAGULANT THERAPY
     Route: 065
  4. BIVALIRUDIN INJECTION [Suspect]
     Active Substance: BIVALIRUDIN
     Indication: ANTICOAGULANT THERAPY
     Route: 065
  5. EPINEPHRINE. [Concomitant]
     Active Substance: EPINEPHRINE
     Route: 065
  6. DOPAMINE [Concomitant]
     Active Substance: DOPAMINE HYDROCHLORIDE
  7. EPINEPHRINE. [Concomitant]
     Active Substance: EPINEPHRINE
     Indication: CARDIOGENIC SHOCK
     Route: 065

REACTIONS (7)
  - Thrombosis [Unknown]
  - Renal failure [Unknown]
  - Haemolysis [Unknown]
  - Haemodynamic instability [Unknown]
  - Thrombocytopenia [Not Recovered/Not Resolved]
  - Liver injury [Unknown]
  - Ischaemia [Unknown]
